FAERS Safety Report 22592418 (Version 3)
Quarter: 2024Q2

REPORT INFORMATION
  Report Type: Spontaneous
  Country: US (occurrence: None)
  Receive Date: 20230613
  Receipt Date: 20240430
  Transmission Date: 20240716
  Serious: Yes (Other)
  Sender: FDA-Public Use
  Company Number: US-ROCHE-3364157

PATIENT
  Sex: Female
  Weight: 90.8 kg

DRUGS (13)
  1. OCREVUS [Suspect]
     Active Substance: OCRELIZUMAB
     Indication: Relapsing-remitting multiple sclerosis
     Dosage: YES
     Route: 042
     Dates: start: 202106
  2. ROSUVASTATIN [Concomitant]
     Active Substance: ROSUVASTATIN
  3. LEVOTHYROXINE SODIUM [Concomitant]
     Active Substance: LEVOTHYROXINE SODIUM
  4. LOSARTAN POTASSIUM [Concomitant]
     Active Substance: LOSARTAN POTASSIUM
  5. FLUOXETINE [Concomitant]
     Active Substance: FLUOXETINE HYDROCHLORIDE
  6. MEMANTINE [Concomitant]
     Active Substance: MEMANTINE
  7. IPRATROPIUM [Concomitant]
     Active Substance: IPRATROPIUM
  8. RIVASTIGMINE [Concomitant]
     Active Substance: RIVASTIGMINE
  9. METOPROLOL [Concomitant]
     Active Substance: METOPROLOL
  10. ASPIRIN [Concomitant]
     Active Substance: ASPIRIN
  11. MULTI VITAMIN ONE A DAY [Concomitant]
  12. PROBIOTIC (UNK INGREDIENTS) [Concomitant]
  13. NEURIVA BRAIN PERFORMANCE [Concomitant]

REACTIONS (2)
  - Mobility decreased [Unknown]
  - Dementia Alzheimer^s type [Unknown]

NARRATIVE: CASE EVENT DATE: 20230524
